FAERS Safety Report 23431041 (Version 1)
Quarter: 2024Q1

REPORT INFORMATION
  Report Type: Spontaneous
  Country: US (occurrence: US)
  Receive Date: 20240123
  Receipt Date: 20240123
  Transmission Date: 20240410
  Serious: No
  Sender: FDA-Public Use
  Company Number: US-VIIV HEALTHCARE LIMITED-US2024008877

PATIENT
  Sex: Male

DRUGS (4)
  1. CABENUVA [Interacting]
     Active Substance: CABOTEGRAVIR\RILPIVIRINE
     Indication: HIV infection
     Dosage: UNK
  2. CABENUVA [Interacting]
     Active Substance: CABOTEGRAVIR\RILPIVIRINE
  3. CABENUVA [Interacting]
     Active Substance: CABOTEGRAVIR\RILPIVIRINE
  4. LENACAPAVIR [Interacting]
     Active Substance: LENACAPAVIR
     Indication: HIV infection
     Dosage: UNK

REACTIONS (3)
  - Off label use [Unknown]
  - Product use in unapproved therapeutic environment [Unknown]
  - Labelled drug-drug interaction medication error [Unknown]
